FAERS Safety Report 6481349-8 (Version None)
Quarter: 2009Q4

REPORT INFORMATION
  Report Type: 
  Country: None (occurrence: None)
  Receive Date: 20091208
  Receipt Date: 20091202
  Transmission Date: 20100525
  Serious: Yes (Hospitalization)
  Sender: FDA-Public Use
  Company Number: B0610540A

PATIENT
  Age: 41 Year
  Sex: Female

DRUGS (6)
  1. PAXIL [Suspect]
     Indication: DRUG USE FOR UNKNOWN INDICATION
     Dosage: 10MG PER DAY
     Route: 048
     Dates: start: 20091015, end: 20090101
  2. PAXIL [Suspect]
     Dosage: 20MG UNKNOWN
     Route: 048
     Dates: start: 20090101, end: 20091105
  3. PAXIL [Suspect]
     Route: 048
     Dates: start: 20091106, end: 20091125
  4. PAXIL [Suspect]
     Dosage: 20MG UNKNOWN
     Route: 048
     Dates: start: 20091126, end: 20091127
  5. MEILAX [Suspect]
     Indication: DRUG USE FOR UNKNOWN INDICATION
     Route: 048
     Dates: end: 20090101
  6. TOLEDOMIN [Suspect]
     Indication: DRUG USE FOR UNKNOWN INDICATION
     Route: 048
     Dates: start: 20090101

REACTIONS (1)
  - ACTIVATION SYNDROME [None]
